FAERS Safety Report 6781507-9 (Version None)
Quarter: 2010Q2

REPORT INFORMATION
  Report Type: 
  Country: None (occurrence: None)
  Receive Date: 20100621
  Receipt Date: 20100617
  Transmission Date: 20101027
  Serious: Yes (Death, Hospitalization)
  Sender: FDA-Public Use
  Company Number: IL-ROCHE-708867

PATIENT
  Sex: Female

DRUGS (20)
  1. CEFTRIAXONE SODIUM [Suspect]
     Indication: PNEUMONIA
     Route: 065
  2. GLYBURIDE [Suspect]
     Route: 065
  3. AMITRIPTYLINE [Suspect]
     Route: 065
  4. METFORMIN [Suspect]
     Route: 065
  5. CIPROFLOXACIN [Suspect]
     Route: 065
  6. VERAPAMIL [Suspect]
     Indication: HYPERTENSION
     Route: 065
  7. BENALAPRIL [Suspect]
     Indication: HYPERTENSION
     Route: 065
  8. ASPIRIN [Suspect]
     Route: 065
  9. SIMVASTATIN [Suspect]
     Route: 065
  10. THEOPHYLLINE [Suspect]
     Route: 065
  11. FUROSEMIDE [Suspect]
     Indication: HYPERTENSION
     Route: 065
  12. CITALOPRAM [Suspect]
     Route: 065
  13. OMEPRAZOLE [Suspect]
     Indication: DRUG USE FOR UNKNOWN INDICATION
     Route: 065
  14. VANCOMYCIN [Suspect]
     Route: 065
  15. LEVOFLOXACIN [Suspect]
     Route: 065
  16. AMPICILLIN [Suspect]
     Route: 065
  17. PIPERACILLIN [Suspect]
     Route: 065
  18. AMIKACIN [Suspect]
     Route: 065
  19. HYDROCORTISONE [Suspect]
     Indication: TOXIC EPIDERMAL NECROLYSIS
     Route: 065
  20. IMMUNOGLOBULINES SP. ANTI-VARICELLE-ZONA [Suspect]
     Indication: DRUG USE FOR UNKNOWN INDICATION
     Dosage: DRUG: GAMMA GLOB ANTIVAR (IMMUNOGLOBULIN HUMAN ANTI-SMALLPOX) THERAPY DURATION : 4 DAYS
     Route: 040

REACTIONS (5)
  - ACUTE RESPIRATORY DISTRESS SYNDROME [None]
  - BACTERAEMIA [None]
  - HAEMORRHAGE INTRACRANIAL [None]
  - HYPOGLYCAEMIA [None]
  - TOXIC EPIDERMAL NECROLYSIS [None]
